FAERS Safety Report 9494544 (Version 2)
Quarter: 2013Q4

REPORT INFORMATION
  Report Type: Report from Study
  Country: IE (occurrence: IE)
  Receive Date: 20130903
  Receipt Date: 20131107
  Transmission Date: 20140711
  Serious: Yes (Other)
  Sender: FDA-Public Use
  Company Number: PHHY2013IE095268

PATIENT
  Age: 44 Year
  Sex: Female

DRUGS (3)
  1. GILENYA [Suspect]
     Indication: RELAPSING-REMITTING MULTIPLE SCLEROSIS
     Dosage: 0.5 MG, QD
     Route: 048
     Dates: start: 20121113
  2. PREGABALIN [Concomitant]
     Indication: NEURALGIA
     Dosage: 250 MG, DAILY
     Route: 048
  3. FLUOXETINE [Concomitant]
     Indication: DEPRESSION
     Dosage: 20 MG, DAILY
     Route: 048

REACTIONS (1)
  - Hemiparesis [Not Recovered/Not Resolved]
